FAERS Safety Report 5496972-7 (Version None)
Quarter: 2007Q4

REPORT INFORMATION
  Report Type: 
  Country: None (occurrence: None)
  Receive Date: 20071025
  Receipt Date: 20071018
  Transmission Date: 20080405
  Serious: Yes (Disabling, Other)
  Sender: FDA-Public Use
  Company Number: B0492688A

PATIENT
  Age: 24 Year
  Sex: Male
  Weight: 70 kg

DRUGS (3)
  1. LAMOTRIGINE [Suspect]
     Indication: DRUG USE FOR UNKNOWN INDICATION
     Dosage: 100MG UNKNOWN
     Route: 048
     Dates: start: 20070718, end: 20070928
  2. CLOBAZAM [Concomitant]
     Dosage: 30MG UNKNOWN
     Route: 048
  3. METHADONE HCL [Concomitant]
     Dosage: 150ML UNKNOWN
     Route: 048

REACTIONS (1)
  - ALOPECIA TOTALIS [None]
